FAERS Safety Report 20039475 (Version 2)
Quarter: 2022Q1

REPORT INFORMATION
  Report Type: Report from Study
  Country: DO (occurrence: DO)
  Receive Date: 20211105
  Receipt Date: 20220218
  Transmission Date: 20220424
  Serious: Yes (Hospitalization, Disabling, Other)
  Sender: FDA-Public Use
  Company Number: DO-ABBVIE-21K-279-4150082-00

PATIENT
  Age: 26 Year
  Sex: Male
  Weight: 54.480 kg

DRUGS (1)
  1. HUMIRA [Suspect]
     Active Substance: ADALIMUMAB
     Indication: Crohn^s disease
     Route: 058
     Dates: start: 20210320, end: 20220129

REACTIONS (5)
  - Skin ulcer [Unknown]
  - Musculoskeletal disorder [Recovering/Resolving]
  - Fall [Recovering/Resolving]
  - Pyrexia [Recovering/Resolving]
  - Gastrointestinal bacterial infection [Recovering/Resolving]

NARRATIVE: CASE EVENT DATE: 20211005
